FAERS Safety Report 24000864 (Version 1)
Quarter: 2024Q2

REPORT INFORMATION
  Report Type: Spontaneous
  Country: US (occurrence: US)
  Receive Date: 20240621
  Receipt Date: 20240621
  Transmission Date: 20240717
  Serious: Yes (Death, Other)
  Sender: FDA-Public Use
  Company Number: US-BRISTOL-MYERS SQUIBB COMPANY-2024-097544

PATIENT
  Age: 66 Year
  Sex: Male

DRUGS (2)
  1. NIVOLUMAB [Suspect]
     Active Substance: NIVOLUMAB
     Indication: Gastrointestinal melanoma
  2. IPILIMUMAB [Suspect]
     Active Substance: IPILIMUMAB
     Indication: Gastrointestinal melanoma

REACTIONS (6)
  - Pneumonia [Unknown]
  - Diarrhoea [Unknown]
  - Abdominal pain [Unknown]
  - Immune thrombocytopenia [Unknown]
  - Sepsis [Unknown]
  - Cardiac failure [Fatal]
